FAERS Safety Report 26053353 (Version 1)
Quarter: 2025Q4

REPORT INFORMATION
  Report Type: Spontaneous
  Country: US (occurrence: None)
  Receive Date: 20251116
  Receipt Date: 20251116
  Transmission Date: 20260118
  Serious: Yes (Hospitalization)
  Sender: FDA-CTU
  Company Number: None

PATIENT
  Age: 9 Year
  Sex: Female

DRUGS (1)
  1. TAFINLAR [Suspect]
     Active Substance: DABRAFENIB MESYLATE
     Indication: Brain neoplasm
     Dosage: OTHER QUANTITY : 1 MG AND 80 MG ;?OTHER FREQUENCY : 1 MG DAILY; 80MG TWICE DAILY;?

REACTIONS (1)
  - Hospitalisation [None]
